FAERS Safety Report 8331748-4 (Version None)
Quarter: 2012Q2

REPORT INFORMATION
  Report Type: 
  Country: None (occurrence: None)
  Receive Date: 20120502
  Receipt Date: 20120423
  Transmission Date: 20120825
  Serious: No
  Sender: FDA-Public Use
  Company Number: US-AMGEN-USASP2012025569

PATIENT
  Age: 42 Year
  Sex: Female

DRUGS (1)
  1. ENBREL [Suspect]
     Indication: SJOGREN'S SYNDROME
     Dosage: 50 MG, QWK
     Dates: start: 20120331

REACTIONS (6)
  - INJECTION SITE HAEMATOMA [None]
  - INJECTION SITE WARMTH [None]
  - SCLERAL DISCOLOURATION [None]
  - INJECTION SITE INFLAMMATION [None]
  - INJECTION SITE INDURATION [None]
  - INJECTION SITE ERYTHEMA [None]
